FAERS Safety Report 12788038 (Version 1)
Quarter: 2016Q3

REPORT INFORMATION
  Report Type: Spontaneous
  Country: US (occurrence: US)
  Receive Date: 20160928
  Receipt Date: 20160928
  Transmission Date: 20161109
  Serious: Yes (Other)
  Sender: FDA-Public Use
  Company Number: PHHY2016US132470

PATIENT
  Age: 66 Year
  Sex: Female

DRUGS (15)
  1. BRIMONIDINE W/TIMOLOL [Concomitant]
     Active Substance: BRIMONIDINE TARTRATE\TIMOLOL MALEATE
     Indication: INTRAOCULAR PRESSURE INCREASED
     Route: 061
  2. TRIAMCINOLONE [Suspect]
     Active Substance: TRIAMCINOLONE
     Indication: CYSTOID MACULAR OEDEMA
  3. PREDNISOLONE. [Suspect]
     Active Substance: PREDNISOLONE
     Indication: UVEITIS
  4. TRIAMCINOLONE [Suspect]
     Active Substance: TRIAMCINOLONE
     Indication: UVEITIS
     Route: 065
  5. TRIAMCINOLONE [Suspect]
     Active Substance: TRIAMCINOLONE
     Indication: VITREOUS HAEMORRHAGE
  6. PREDNISOLONE. [Suspect]
     Active Substance: PREDNISOLONE
     Indication: CYSTOID MACULAR OEDEMA
  7. DORZOLAMIDE W/TIMOLOL [Concomitant]
     Active Substance: DORZOLAMIDE HYDROCHLORIDE\TIMOLOL MALEATE
     Indication: INTRAOCULAR PRESSURE INCREASED
     Route: 065
  8. METHOTREXATE. [Suspect]
     Active Substance: METHOTREXATE
     Indication: CYSTOID MACULAR OEDEMA
  9. BEVACIZUMAB [Suspect]
     Active Substance: BEVACIZUMAB
     Indication: UVEITIS
     Route: 065
  10. PREDNISOLONE. [Suspect]
     Active Substance: PREDNISOLONE
     Indication: IRITIS
     Route: 065
  11. PREDNISOLONE. [Suspect]
     Active Substance: PREDNISOLONE
     Indication: VITREOUS HAEMORRHAGE
  12. METHOTREXATE. [Suspect]
     Active Substance: METHOTREXATE
     Indication: UVEITIS
     Route: 065
  13. METHOTREXATE. [Suspect]
     Active Substance: METHOTREXATE
     Indication: VITREOUS HAEMORRHAGE
  14. BEVACIZUMAB [Suspect]
     Active Substance: BEVACIZUMAB
     Indication: CYSTOID MACULAR OEDEMA
  15. BEVACIZUMAB [Suspect]
     Active Substance: BEVACIZUMAB
     Indication: VITREOUS HAEMORRHAGE

REACTIONS (1)
  - Drug resistance [Unknown]
